FAERS Safety Report 13958269 (Version 1)
Quarter: 2017Q3

REPORT INFORMATION
  Report Type: Spontaneous
  Country: US (occurrence: US)
  Receive Date: 20170911
  Receipt Date: 20170911
  Transmission Date: 20171128
  Serious: Yes (Other)
  Sender: FDA-Public Use
  Company Number: US-ROCHE-800976

PATIENT
  Age: 53 Year
  Sex: Male

DRUGS (2)
  1. CELLCEPT [Concomitant]
     Indication: PRODUCT USED FOR UNKNOWN INDICATION
     Route: 065
  2. MABTHERA [Suspect]
     Active Substance: RITUXIMAB
     Indication: NEUROMYELITIS OPTICA SPECTRUM DISORDER
     Dosage: 500 MG, Q2W
     Route: 042

REACTIONS (4)
  - Nephrolithiasis [Unknown]
  - Cerebrovascular accident [Unknown]
  - Cystitis [Unknown]
  - Demyelination [Unknown]
